FAERS Safety Report 12222144 (Version 4)
Quarter: 2016Q2

REPORT INFORMATION
  Report Type: Spontaneous
  Country: JP (occurrence: JP)
  Receive Date: 20160330
  Receipt Date: 20160425
  Transmission Date: 20160815
  Serious: Yes (Other)
  Sender: FDA-Public Use
  Company Number: JP-PFIZER INC-2016119179

PATIENT
  Age: 82 Year
  Sex: Female

DRUGS (13)
  1. LYRICA [Suspect]
     Active Substance: PREGABALIN
     Indication: PAIN IN EXTREMITY
     Dosage: 25 MG, 2X/DAY
     Route: 048
     Dates: start: 20160120, end: 20160223
  2. AMLODIN [Suspect]
     Active Substance: AMLODIPINE BESYLATE
     Indication: HYPERTENSION
     Dosage: 5 MG, 1X/DAY
     Route: 048
  3. HYPEN [Concomitant]
     Active Substance: ETODOLAC
     Dosage: 200 MG, 2X/DAY
     Route: 048
     Dates: start: 20140820, end: 20150424
  4. MOBIC [Concomitant]
     Active Substance: MELOXICAM
     Dosage: 10 MG, 1X/DAY
     Route: 048
     Dates: start: 20150520, end: 20150731
  5. LYRICA [Suspect]
     Active Substance: PREGABALIN
     Indication: HYPOAESTHESIA
  6. CELECOX [Suspect]
     Active Substance: CELECOXIB
     Indication: BACK PAIN
  7. EDIROL [Concomitant]
     Active Substance: ELDECALCITOL
     Dosage: 0.75 UG, 1X/DAY
     Route: 048
     Dates: start: 20110916
  8. CELECOX [Suspect]
     Active Substance: CELECOXIB
     Indication: ARTHRITIS
     Dosage: 100 MG, 2X/DAY
     Route: 048
     Dates: start: 20150816, end: 20160120
  9. OLMETEC [Concomitant]
     Active Substance: OLMESARTAN MEDOXOMIL
     Dosage: 10 MG, 1X/DAY
     Route: 048
  10. LIPIDIL [Concomitant]
     Active Substance: FENOFIBRATE
     Dosage: 80 MG, 1X/DAY
     Route: 048
  11. STAYBLA [Concomitant]
     Active Substance: IMIDAFENACIN
     Dosage: 0.1 MG, 2X/DAY
     Route: 048
     Dates: start: 20150304, end: 20150430
  12. BETANIS [Concomitant]
     Active Substance: MIRABEGRON
     Dosage: 50 MG, 1X/DAY
     Route: 048
     Dates: start: 20150701, end: 20160220
  13. PREDNISOLONE. [Concomitant]
     Active Substance: PREDNISOLONE
     Dosage: 3 MG, 1X/DAY
     Route: 048
     Dates: start: 20150821, end: 20160220

REACTIONS (8)
  - Oedema peripheral [Recovering/Resolving]
  - Face oedema [Recovered/Resolved]
  - Weight increased [Recovering/Resolving]
  - Sinus arrhythmia [Unknown]
  - Diabetes mellitus [Not Recovered/Not Resolved]
  - Blood potassium decreased [Unknown]
  - Cystitis [Recovering/Resolving]
  - Cardiac failure [Recovering/Resolving]

NARRATIVE: CASE EVENT DATE: 20160202
